FAERS Safety Report 4586873-0 (Version None)
Quarter: 2005Q1

REPORT INFORMATION
  Report Type: 
  Country: None (occurrence: None)
  Receive Date: 20050216
  Receipt Date: 20050216
  Transmission Date: 20050727
  Serious: Yes (Other)
  Sender: FDA-Public Use
  Company Number: None

PATIENT
  Sex: Female
  Weight: 98.8842 kg

DRUGS (1)
  1. MONOPRIL [Suspect]
     Indication: HYPERTENSION
     Dosage: 10 MG ONCE PO QID
     Route: 048

REACTIONS (1)
  - HEADACHE [None]
